FAERS Safety Report 16641913 (Version 2)
Quarter: 2019Q3

REPORT INFORMATION
  Report Type: Spontaneous
  Country: US (occurrence: US)
  Receive Date: 20190729
  Receipt Date: 20190828
  Transmission Date: 20191004
  Serious: Yes (Other)
  Sender: FDA-Public Use
  Company Number: US-PFIZER INC-2019318205

PATIENT
  Age: 55 Year
  Sex: Male

DRUGS (2)
  1. LYRICA [Suspect]
     Active Substance: PREGABALIN
     Dosage: UNK, AS NEEDED (DOES NOT TAKE LYRICA EVERY DAY BECAUSE HIS PAIN IS NOT WITH HIM EVERY DAY)
  2. LYRICA [Suspect]
     Active Substance: PREGABALIN
     Indication: NEURALGIA
     Dosage: UNK

REACTIONS (3)
  - Bipolar I disorder [Unknown]
  - Anxiety [Unknown]
  - Intentional dose omission [Unknown]
